FAERS Safety Report 22650357 (Version 1)
Quarter: 2023Q2

REPORT INFORMATION
  Report Type: Spontaneous
  Country: US (occurrence: US)
  Receive Date: 20230628
  Receipt Date: 20230628
  Transmission Date: 20230722
  Serious: No
  Sender: FDA-Public Use
  Company Number: US-MAYNE PHARMA-2022TMD00743

PATIENT
  Sex: Female
  Weight: 52.154 kg

DRUGS (5)
  1. IMVEXXY [Suspect]
     Active Substance: ESTRADIOL
     Dosage: UNK
     Route: 067
     Dates: start: 2012
  2. IMVEXXY [Suspect]
     Active Substance: ESTRADIOL
     Indication: Hormone replacement therapy
     Dosage: 4 ?G, 2X/WEEK
     Route: 067
     Dates: end: 202207
  3. TRIAMTERENE [Concomitant]
     Active Substance: TRIAMTERENE
  4. SYNTHROID [Concomitant]
     Active Substance: LEVOTHYROXINE SODIUM
  5. PANTOPRAZOLE [Concomitant]
     Active Substance: PANTOPRAZOLE

REACTIONS (2)
  - Muscle spasms [Recovered/Resolved]
  - Hypertension [Not Recovered/Not Resolved]
